FAERS Safety Report 10591262 (Version 2)
Quarter: 2014Q4

REPORT INFORMATION
  Report Type: Report from Study
  Country: KR (occurrence: KR)
  Receive Date: 20141118
  Receipt Date: 20141125
  Transmission Date: 20150529
  Serious: Yes (Death, Other)
  Sender: FDA-Public Use
  Company Number: KR-SA-2014SA155709

PATIENT
  Age: 76 Year
  Sex: Male
  Weight: 52 kg

DRUGS (2)
  1. ACTOS [Concomitant]
     Active Substance: PIOGLITAZONE HYDROCHLORIDE
     Indication: DIABETES MELLITUS
     Route: 048
     Dates: start: 20140806, end: 20141029
  2. LANTUS [Suspect]
     Active Substance: INSULIN GLARGINE
     Indication: DIABETES MELLITUS
     Dosage: DOSE:8 UNIT(S)
     Route: 058
     Dates: start: 20140806, end: 20141029

REACTIONS (3)
  - Subarachnoid haemorrhage [Fatal]
  - Fall [Unknown]
  - Coma [Unknown]

NARRATIVE: CASE EVENT DATE: 20141029
